FAERS Safety Report 5415537-6 (Version None)
Quarter: 2007Q3

REPORT INFORMATION
  Report Type: 
  Country: None (occurrence: None)
  Receive Date: 20070815
  Receipt Date: 20070810
  Transmission Date: 20080115
  Serious: Yes (Hospitalization)
  Sender: FDA-Public Use
  Company Number: A0669502A

PATIENT
  Sex: Female

DRUGS (5)
  1. WELLBUTRIN XL [Suspect]
     Indication: PAIN MANAGEMENT
     Dosage: 300MG PER DAY
     Route: 048
  2. LIBRAX [Concomitant]
  3. UNSPECIFIED MEDICATION [Concomitant]
  4. IBUPROFEN [Concomitant]
  5. TYLENOL (CAPLET) [Concomitant]

REACTIONS (3)
  - BREAST CANCER [None]
  - INFECTION [None]
  - OVARIAN CYST [None]
